FAERS Safety Report 7883885-6 (Version None)
Quarter: 2011Q4

REPORT INFORMATION
  Report Type: 
  Country: None (occurrence: None)
  Receive Date: 20111102
  Receipt Date: 20111026
  Transmission Date: 20120403
  Serious: Yes (Hospitalization)
  Sender: FDA-Public Use
  Company Number: JP-PFIZER INC-2011261609

PATIENT
  Age: 57 Year
  Sex: Male
  Weight: 50 kg

DRUGS (45)
  1. SUNITINIB MALATE [Suspect]
     Dosage: 37.5 MG, 1X/DAY
     Dates: start: 20100715, end: 20100721
  2. LOXONIN [Concomitant]
     Dosage: UNK
     Route: 048
  3. POTASSIUM CHLORIDE [Concomitant]
     Dosage: 200 ML, 1X/DAY
     Route: 042
     Dates: start: 20100812
  4. JUVELA [Concomitant]
     Dosage: 40 G, ONCE OR TWICE DAILY
     Dates: start: 20100819, end: 20101021
  5. RINDERON-VG [Concomitant]
     Dosage: 10 G, ONCE OR TWICE DAILY
     Dates: start: 20100819, end: 20101021
  6. PLEVITA S [Concomitant]
     Dosage: 1A ONCE DAILY
     Route: 042
     Dates: start: 20100715
  7. PLEVITA S [Concomitant]
     Dosage: 1A ONCE DAILY
     Route: 042
     Dates: start: 20100805
  8. PLEVITA S [Concomitant]
     Dosage: 1A ONCE DAILY
     Route: 042
     Dates: start: 20100902
  9. SUNITINIB MALATE [Suspect]
     Dosage: 50 MG, 1X/DAY
     Dates: start: 20100812, end: 20100818
  10. BETAMETHASONE [Concomitant]
     Dosage: 2 MG, 1X/DAY
     Route: 042
     Dates: start: 20100715
  11. BETAMETHASONE [Concomitant]
     Dosage: 2 MG, 1X/DAY
     Route: 042
     Dates: start: 20100722
  12. BETAMETHASONE [Concomitant]
     Dosage: 2 MG, 1X/DAY
     Route: 042
     Dates: start: 20100819
  13. BETAMETHASONE [Concomitant]
     Dosage: 2 MG, 1X/DAY
     Route: 042
     Dates: start: 20100826, end: 20100827
  14. BETAMETHASONE [Concomitant]
     Dosage: 2 MG, 1X/DAY
     Route: 042
     Dates: start: 20100916
  15. POTASSIUM CHLORIDE [Concomitant]
     Dosage: 200 ML, 1X/DAY
     Route: 042
     Dates: start: 20100902
  16. PLEVITA S [Concomitant]
     Dosage: 1A ONCE DAILY
     Route: 042
     Dates: start: 20100819
  17. SUNITINIB MALATE [Suspect]
     Dosage: 50 MG, 1X/DAY
     Dates: start: 20100826, end: 20100830
  18. VEEN D [Concomitant]
     Dosage: 500 ML, 1X/DAY
     Dates: start: 20100715
  19. POTASSIUM CHLORIDE [Concomitant]
     Dosage: 200 ML, 1X/DAY
     Route: 042
     Dates: start: 20100819
  20. PLEVITA S [Concomitant]
     Dosage: 1A ONCE DAILY
     Route: 042
     Dates: start: 20100722
  21. SUNITINIB MALATE [Suspect]
     Indication: GASTROINTESTINAL STROMAL TUMOUR
     Dosage: 50 MG, 1X/DAY
     Route: 048
     Dates: start: 20090212
  22. HALCION [Concomitant]
     Dosage: UNK
     Route: 048
  23. SHAKUYAKU-KANZO-TO [Concomitant]
     Dosage: UNK
     Route: 048
  24. BETAMETHASONE [Concomitant]
     Dosage: 2 MG, 1X/DAY
     Route: 042
     Dates: start: 20100708
  25. BETAMETHASONE [Concomitant]
     Dosage: 2 MG, 1X/DAY
     Route: 042
     Dates: start: 20100904
  26. POTASSIUM CHLORIDE [Concomitant]
     Dosage: 200 ML, 1X/DAY
     Route: 042
     Dates: start: 20100826, end: 20100827
  27. POTASSIUM CHLORIDE [Concomitant]
     Dosage: 200 ML, 1X/DAY
     Route: 042
     Dates: start: 20100904
  28. VEEN D [Concomitant]
     Dosage: 500 ML, 1X/DAY
     Route: 042
     Dates: start: 20100708
  29. PLEVITA S [Concomitant]
     Dosage: 1A ONCE DAILY
     Route: 042
     Dates: start: 20100708
  30. PLEVITA S [Concomitant]
     Dosage: 1A ONCE DAILY
     Route: 042
     Dates: start: 20100916
  31. SUNITINIB MALATE [Suspect]
     Dosage: 50 MG, 1X/DAY
     Dates: start: 20100722, end: 20100728
  32. SUNITINIB MALATE [Suspect]
     Dosage: 50 MG, 1X/DAY
     Dates: start: 20100805, end: 20100809
  33. SUNITINIB MALATE [Suspect]
     Dosage: 50 MG, 1X/DAY
     Dates: start: 20100904, end: 20100908
  34. BETAMETHASONE [Concomitant]
     Dosage: 2 MG, 1X/DAY
     Route: 042
     Dates: start: 20100902
  35. POTASSIUM CHLORIDE [Concomitant]
     Dosage: 200 ML, 1X/DAY
     Route: 042
     Dates: start: 20100916
  36. PLEVITA S [Concomitant]
     Dosage: 1A ONCE DAILY
     Route: 042
     Dates: start: 20100812
  37. PLEVITA S [Concomitant]
     Dosage: 1A ONCE DAILY
     Route: 042
     Dates: start: 20100904
  38. BETAMETHASONE [Concomitant]
     Dosage: 2 MG, 1X/DAY
     Route: 042
     Dates: start: 20100805
  39. BETAMETHASONE [Concomitant]
     Dosage: 2 MG, 1X/DAY
     Route: 048
     Dates: start: 20100729
  40. PLEVITA S [Concomitant]
     Dosage: 1A ONCE DAILY
     Route: 042
     Dates: start: 20100826, end: 20100827
  41. SUNITINIB MALATE [Suspect]
     Dosage: 50 MG, 1X/DAY
     Dates: start: 20100911, end: 20100913
  42. SUNITINIB MALATE [Suspect]
     Dosage: 50 MG, ALTERNATE DAY
     Dates: start: 20100916, end: 20101012
  43. BETAMETHASONE [Concomitant]
     Dosage: 2 MG, 1X/DAY
     Route: 042
     Dates: start: 20100812
  44. VEEN D [Concomitant]
     Dosage: 500 ML, 1X/DAY
     Route: 042
     Dates: start: 20100722
  45. VEEN D [Concomitant]
     Dosage: 500 ML, 1X/DAY
     Route: 042
     Dates: start: 20100805

REACTIONS (5)
  - BLOOD BILIRUBIN INCREASED [None]
  - ALANINE AMINOTRANSFERASE INCREASED [None]
  - ASPARTATE AMINOTRANSFERASE INCREASED [None]
  - BLOOD ALKALINE PHOSPHATASE INCREASED [None]
  - GAMMA-GLUTAMYLTRANSFERASE INCREASED [None]
